FAERS Safety Report 7734107-8 (Version None)
Quarter: 2011Q3

REPORT INFORMATION
  Report Type: 
  Country: None (occurrence: None)
  Receive Date: 20110907
  Receipt Date: 20110831
  Transmission Date: 20111222
  Serious: Yes (Hospitalization)
  Sender: FDA-Public Use
  Company Number: CO-ROCHE-799815

PATIENT
  Sex: Female

DRUGS (3)
  1. LOPERAMIDE HCL [Concomitant]
     Indication: VOMITING
     Route: 048
  2. BEVACIZUMAB [Suspect]
     Indication: COLORECTAL CANCER
     Route: 042
     Dates: start: 20110525, end: 20110801
  3. ONDANSETRON [Concomitant]
     Indication: VOMITING
     Route: 048

REACTIONS (2)
  - INSOMNIA [None]
  - HEADACHE [None]
